FAERS Safety Report 4899970-7 (Version None)
Quarter: 2006Q1

REPORT INFORMATION
  Report Type: 
  Country: None (occurrence: None)
  Receive Date: 20060131
  Receipt Date: 20060118
  Transmission Date: 20060701
  Serious: Yes (Other)
  Sender: FDA-Public Use
  Company Number: 2006009983

PATIENT
  Sex: Female
  Weight: 43.5453 kg

DRUGS (10)
  1. LIPITOR [Suspect]
     Indication: BLOOD CHOLESTEROL INCREASED
     Dosage: 20 MG (20 MG, 1 IN 1 D), ORAL
     Route: 048
     Dates: start: 20050501
  2. LYRICA [Suspect]
     Indication: NEURALGIA
     Dosage: 150 MG (50 MG, 3 IN1 D), ORAL
     Route: 048
     Dates: start: 20060117
  3. ALDACTONE [Suspect]
     Indication: ILL-DEFINED DISORDER
     Dosage: 25 MG
  4. SPIRIVA [Suspect]
     Indication: ILL-DEFINED DISORDER
  5. PERCOCET [Suspect]
     Indication: ILL-DEFINED DISORDER
     Dates: start: 20060117
  6. PLAVIX [Concomitant]
  7. ASPIRIN [Concomitant]
  8. ENALAPRIL MALEATE [Concomitant]
  9. PRILOSEC [Concomitant]
  10. ADVAIR DISKUS 100/50 [Concomitant]

REACTIONS (5)
  - DIFFICULTY IN WALKING [None]
  - DIZZINESS [None]
  - FATIGUE [None]
  - FEELING ABNORMAL [None]
  - NEURALGIA [None]
